FAERS Safety Report 8161138-9 (Version None)
Quarter: 2012Q1

REPORT INFORMATION
  Report Type: 
  Country: None (occurrence: None)
  Receive Date: 20120224
  Receipt Date: 20120222
  Transmission Date: 20120608
  Serious: No
  Sender: FDA-Public Use
  Company Number: US-PFIZER INC-2012048346

PATIENT
  Sex: Male
  Weight: 66.213 kg

DRUGS (3)
  1. CHANTIX [Suspect]
     Indication: SMOKING CESSATION THERAPY
     Dosage: 0.5 MG, DAILY
     Dates: start: 20120204, end: 20120201
  2. DEXILANT [Concomitant]
     Indication: GASTROOESOPHAGEAL REFLUX DISEASE
     Dosage: UNK
  3. CHANTIX [Suspect]
     Dosage: 1 MG, 2X/DAY
     Dates: start: 20120201

REACTIONS (1)
  - AGITATION [None]
